FAERS Safety Report 15291515 (Version 6)
Quarter: 2019Q1

REPORT INFORMATION
  Report Type: Report from Study
  Country: US (occurrence: US)
  Receive Date: 20180817
  Receipt Date: 20190214
  Transmission Date: 20190417
  Serious: Yes (Hospitalization)
  Sender: FDA-Public Use
  Company Number: US-ACTELION-A-US2018-174314

PATIENT
  Age: 67 Year
  Sex: Male

DRUGS (5)
  1. AMIODARONE [Concomitant]
     Active Substance: AMIODARONE
  2. FLOLAN [Concomitant]
     Active Substance: EPOPROSTENOL SODIUM
     Dosage: 54 NG/KG, PER MIN
     Route: 042
  3. TADALAFIL. [Concomitant]
     Active Substance: TADALAFIL
     Dosage: UNK UNK, QD
  4. O2 [Concomitant]
     Active Substance: OXYGEN
     Dosage: 2-4 L, UNK
  5. OPSUMIT [Suspect]
     Active Substance: MACITENTAN
     Indication: PULMONARY ARTERIAL HYPERTENSION
     Dosage: 10 MG, QD
     Route: 048
     Dates: start: 20160216

REACTIONS (17)
  - Right ventricular failure [Unknown]
  - Condition aggravated [Unknown]
  - Oxygen consumption increased [Unknown]
  - Thrombocytopenia [Unknown]
  - Exercise tolerance decreased [Unknown]
  - Transplant evaluation [Unknown]
  - Colonoscopy [Unknown]
  - Acute kidney injury [Recovering/Resolving]
  - Device malfunction [Unknown]
  - Fluid overload [Unknown]
  - Epistaxis [Unknown]
  - Blood creatinine abnormal [Unknown]
  - Renal impairment [Recovering/Resolving]
  - Palpitations [Unknown]
  - Hyponatraemia [Unknown]
  - Supraventricular tachycardia [Unknown]
  - Atrial flutter [Unknown]

NARRATIVE: CASE EVENT DATE: 201712
